FAERS Safety Report 8625076-7 (Version None)
Quarter: 2012Q3

REPORT INFORMATION
  Report Type: 
  Country: None (occurrence: None)
  Receive Date: 20120827
  Receipt Date: 20120822
  Transmission Date: 20120928
  Serious: Yes (Disabling, Other)
  Sender: FDA-Public Use
  Company Number: GB-B.I. PHARMACEUTICALS,INC./RIDGEFIELD-2012-UK-01116UK

PATIENT
  Age: 74 Year
  Sex: Male

DRUGS (6)
  1. VALSARTAN [Concomitant]
  2. ATENOLOL [Concomitant]
  3. PRAMIPEXOLE DIHYDROCHLORIDE [Suspect]
     Indication: PARKINSON'S DISEASE
     Dosage: 2.62 MG
     Route: 048
     Dates: start: 20120427, end: 20120814
  4. ASPIRIN [Concomitant]
  5. OMEPRAZOLE [Concomitant]
  6. STALEVO 100 [Concomitant]

REACTIONS (2)
  - ANXIETY [None]
  - CHEST DISCOMFORT [None]
